FAERS Safety Report 11055773 (Version 4)
Quarter: 2015Q2

REPORT INFORMATION
  Report Type: Spontaneous
  Country: IT (occurrence: IT)
  Receive Date: 20150422
  Receipt Date: 20150514
  Transmission Date: 20150821
  Serious: Yes (Hospitalization)
  Sender: FDA-Public Use
  Company Number: IT-ASTRAZENECA-2015SE35694

PATIENT
  Age: 22611 Day
  Sex: Male

DRUGS (10)
  1. CRESTOR [Suspect]
     Active Substance: ROSUVASTATIN CALCIUM
     Indication: DYSLIPIDAEMIA
     Route: 048
  2. CARDIRENE [Suspect]
     Active Substance: ASPIRIN DL-LYSINE
     Dosage: 160 MG POWDER FOR ORAL SOLUTION, DAILY
     Route: 048
  3. ENALAPRIL RATIOPHARM [Suspect]
     Active Substance: ENALAPRIL
     Indication: HYPERTENSION
     Route: 048
  4. SELES BETA [Suspect]
     Active Substance: ATENOLOL
     Indication: HYPERTENSION
     Route: 048
  5. CARDIRENE [Suspect]
     Active Substance: ASPIRIN DL-LYSINE
     Dosage: 160 MG POWDER FOR ORAL SOLUTION, DAILY
     Route: 048
  6. MONOCINQUE [Suspect]
     Active Substance: ISOSORBIDE MONONITRATE
     Route: 048
  7. SELES BETA [Suspect]
     Active Substance: ATENOLOL
     Indication: HYPERTENSION
     Route: 048
  8. CRESTOR [Suspect]
     Active Substance: ROSUVASTATIN CALCIUM
     Indication: DYSLIPIDAEMIA
     Route: 048
  9. MONOCINQUE [Suspect]
     Active Substance: ISOSORBIDE MONONITRATE
     Route: 048
  10. ENALAPRIL RATIOPHARM [Suspect]
     Active Substance: ENALAPRIL
     Indication: HYPERTENSION
     Route: 048

REACTIONS (6)
  - Treatment noncompliance [Recovered/Resolved]
  - Oedema peripheral [Recovered/Resolved]
  - Influenza [Unknown]
  - Tachycardia [Recovered/Resolved]
  - Rales [Recovered/Resolved]
  - Dyspnoea [Recovered/Resolved]

NARRATIVE: CASE EVENT DATE: 20140429
